FAERS Safety Report 14649053 (Version 1)
Quarter: 2018Q1

REPORT INFORMATION
  Report Type: Spontaneous
  Country: PT (occurrence: PT)
  Receive Date: 20180316
  Receipt Date: 20180316
  Transmission Date: 20180509
  Serious: Yes (Hospitalization)
  Sender: FDA-Public Use
  Company Number: PT-AUROBINDO-AUR-APL-2018-015042

PATIENT
  Age: 2 Month
  Sex: Male
  Weight: 6.1 kg

DRUGS (1)
  1. PARACETAMOL [Suspect]
     Active Substance: ACETAMINOPHEN
     Indication: PYREXIA
     Dosage: 65 MILLILITER, PRESCRITO 65 MG {} 6,5ML
     Route: 042
     Dates: start: 20180212, end: 20180212

REACTIONS (2)
  - Drug administration error [Unknown]
  - Overdose [Recovered/Resolved]

NARRATIVE: CASE EVENT DATE: 20180212
